FAERS Safety Report 5506976-3 (Version None)
Quarter: 2007Q4

REPORT INFORMATION
  Report Type: 
  Country: None (occurrence: None)
  Receive Date: 20071105
  Receipt Date: 20071026
  Transmission Date: 20080405
  Serious: Yes (Hospitalization)
  Sender: FDA-Public Use
  Company Number: US-ABBOTT-07P-163-0422349-00

PATIENT
  Sex: Female

DRUGS (4)
  1. HYDROCODONE [Suspect]
     Indication: PELVIC PAIN
     Route: 048
  2. LUPRON DEPOT-3 [Suspect]
     Indication: ENDOMETRIOSIS
     Route: 030
     Dates: start: 20070601, end: 20071016
  3. LUPRON DEPOT-3 [Suspect]
     Indication: PELVIC PAIN
  4. SERTRALINE [Concomitant]
     Indication: DEPRESSION
     Route: 048
     Dates: start: 20070101

REACTIONS (4)
  - DEPRESSION [None]
  - OVERDOSE [None]
  - SUICIDE ATTEMPT [None]
  - UNRESPONSIVE TO STIMULI [None]
